FAERS Safety Report 8569042-9 (Version None)
Quarter: 2012Q3

REPORT INFORMATION
  Report Type: 
  Country: None (occurrence: None)
  Receive Date: 20120803
  Receipt Date: 20120726
  Transmission Date: 20120928
  Serious: Yes (Other)
  Sender: FDA-Public Use
  Company Number: US-VERTEX PHARMACEUTICALS INC.-AE-2012-010368

PATIENT
  Sex: Female
  Weight: 79.405 kg

DRUGS (11)
  1. PROCRIT [Concomitant]
     Indication: ANAEMIA
     Dates: start: 20120712
  2. ANAPROX DS [Concomitant]
  3. INCIVEK [Suspect]
     Indication: HEPATITIS C
     Route: 048
     Dates: start: 20120531
  4. PEGASYS [Concomitant]
     Indication: HEPATITIS C
     Route: 058
     Dates: start: 20120531
  5. ATIVAN [Concomitant]
     Indication: HYPERSENSITIVITY
  6. ENJUVIA [Concomitant]
  7. CODEINE [Concomitant]
     Indication: HYPERSENSITIVITY
  8. RIBASPHERE [Concomitant]
     Indication: HEPATITIS C
     Route: 048
     Dates: start: 20120531, end: 20120724
  9. GLUMETZA ER [Concomitant]
  10. LISINOPRIL [Concomitant]
  11. ACIPHEX EC [Concomitant]

REACTIONS (10)
  - ALOPECIA [None]
  - ANORECTAL DISCOMFORT [None]
  - RECTAL HAEMORRHAGE [None]
  - PRURITUS [None]
  - ASTHENIA [None]
  - PROCTALGIA [None]
  - WHITE BLOOD CELL COUNT DECREASED [None]
  - SKIN IRRITATION [None]
  - RASH [None]
  - OPTIC NERVE DISORDER [None]
